FAERS Safety Report 9105688 (Version 2)
Quarter: 2013Q3

REPORT INFORMATION
  Report Type: Spontaneous
  Country: GB (occurrence: GB)
  Receive Date: 20130220
  Receipt Date: 20130903
  Transmission Date: 20140515
  Serious: Yes (Death, Hospitalization, Other)
  Sender: FDA-Public Use
  Company Number: GB-AMGEN-GBRSP2013010946

PATIENT
  Age: 74 Year
  Sex: Female
  Weight: 56.8 kg

DRUGS (8)
  1. ENBREL [Suspect]
     Indication: RHEUMATOID ARTHRITIS
     Dosage: 50 MG, WEEKLY
     Route: 058
     Dates: start: 201205, end: 201209
  2. METHOTREXATE [Concomitant]
     Indication: RHEUMATOID ARTHRITIS
     Dosage: 20 MG, WEEKLY
     Route: 048
  3. FOLIC ACID [Concomitant]
     Dosage: 5 MG, WEEKLY
     Route: 048
  4. ETORICOXIB [Concomitant]
     Dosage: 60 MG, 2X/DAY
     Route: 048
  5. BISOPROLOL [Concomitant]
     Dosage: 2.5 MG, 1X/DAY
     Route: 048
  6. OMEPRAZOLE [Concomitant]
     Dosage: 20 MG, 1X/DAY
     Route: 048
  7. ROSUVASTATIN [Concomitant]
     Dosage: 10 MG, 1X/DAY AT NIGHT
  8. MIRTAZAPINE [Concomitant]
     Dosage: UNK

REACTIONS (6)
  - Pulmonary oedema [Unknown]
  - Respiratory failure [Unknown]
  - Sepsis [Unknown]
  - Bronchopneumonia [Fatal]
  - Atypical pneumonia [Unknown]
  - Cardiac failure congestive [Unknown]
